FAERS Safety Report 4615035-3 (Version None)
Quarter: 2005Q1

REPORT INFORMATION
  Report Type: 
  Country: None (occurrence: None)
  Receive Date: 20050322
  Receipt Date: 20050311
  Transmission Date: 20050727
  Serious: Yes (Disabling)
  Sender: FDA-Public Use
  Company Number: US-MERCK-0503USA02749

PATIENT
  Age: 71 Year
  Sex: Male

DRUGS (2)
  1. VIOXX [Suspect]
     Indication: ARTHRITIS
     Route: 065
     Dates: start: 20000210
  2. VIOXX [Suspect]
     Indication: INFLAMMATION
     Route: 065
     Dates: start: 20000210

REACTIONS (1)
  - MYOCARDIAL INFARCTION [None]
